FAERS Safety Report 23466546 (Version 1)
Quarter: 2024Q1

REPORT INFORMATION
  Report Type: Spontaneous
  Country: US (occurrence: US)
  Receive Date: 20240201
  Receipt Date: 20240201
  Transmission Date: 20240410
  Serious: Yes (Hospitalization, Other)
  Sender: FDA-Public Use
  Company Number: US-BRISTOL-MYERS SQUIBB COMPANY-2024-015008

PATIENT
  Age: 73 Year
  Sex: Female
  Weight: 37.65 kg

DRUGS (1)
  1. ELIQUIS [Suspect]
     Active Substance: APIXABAN
     Indication: Atrial fibrillation
     Route: 048
     Dates: end: 20240124

REACTIONS (7)
  - Product dose omission issue [Unknown]
  - Weight decreased [Unknown]
  - Illness [Unknown]
  - Scoliosis [Unknown]
  - Atrial fibrillation [Unknown]
  - Speech disorder [Unknown]
  - Panic attack [Unknown]
